FAERS Safety Report 4494091-X (Version None)
Quarter: 2004Q4

REPORT INFORMATION
  Report Type: 
  Country: None (occurrence: None)
  Receive Date: 20041105
  Receipt Date: 20041021
  Transmission Date: 20050328
  Serious: Yes (Life-Threatening, Hospitalization, Disabling)
  Sender: FDA-Public Use
  Company Number: US-MERCK-0410USA03129

PATIENT
  Age: 39 Year
  Sex: Male

DRUGS (13)
  1. VIOXX [Suspect]
     Indication: PAIN
     Route: 048
     Dates: start: 20030428, end: 20031001
  2. VIOXX [Suspect]
     Route: 048
     Dates: start: 20031001, end: 20031001
  3. PERCOCET [Concomitant]
     Route: 065
  4. LIPITOR [Concomitant]
     Indication: BLOOD CHOLESTEROL INCREASED
     Route: 065
  5. PAXIL [Concomitant]
     Route: 065
  6. NAPROXEN [Concomitant]
     Route: 065
  7. MISOPROSTOL [Concomitant]
     Route: 065
  8. NASONEX [Concomitant]
     Route: 065
  9. MIRAPEX [Concomitant]
     Route: 065
  10. HYDROCODONE BITARTRATE AND ACETAMINOPHEN [Concomitant]
     Route: 065
  11. GEMFIBROZIL [Concomitant]
     Route: 065
  12. DICLOXACILLIN [Concomitant]
     Route: 065
  13. FLUOXETINE [Concomitant]
     Route: 065

REACTIONS (11)
  - AMNESIA [None]
  - BLOOD TRIGLYCERIDES INCREASED [None]
  - CEREBROVASCULAR ACCIDENT [None]
  - CHEST PAIN [None]
  - FAECES DISCOLOURED [None]
  - MENINGITIS [None]
  - NEUROLOGICAL SYMPTOM [None]
  - PALPITATIONS [None]
  - TACHYCARDIA [None]
  - TRANSIENT ISCHAEMIC ATTACK [None]
  - VENTRICULAR HYPERTROPHY [None]
